FAERS Safety Report 12576289 (Version 2)
Quarter: 2016Q3

REPORT INFORMATION
  Report Type: Spontaneous
  Country: US (occurrence: US)
  Receive Date: 20160720
  Receipt Date: 20160729
  Transmission Date: 20161109
  Serious: Yes (Hospitalization, Other)
  Sender: FDA-Public Use
  Company Number: US-ACTAVIS-2016-15787

PATIENT
  Age: 61 Year
  Sex: Female

DRUGS (8)
  1. LORAZEPAM (WATSON LABORATORIES) [Suspect]
     Active Substance: LORAZEPAM
     Indication: PREMEDICATION
     Dosage: 1 MG, SINGLE
     Route: 042
  2. OLANZAPINE (UNKNOWN) [Interacting]
     Active Substance: OLANZAPINE
     Indication: PROPHYLAXIS OF NAUSEA AND VOMITING
  3. FLUOROURACIL. [Concomitant]
     Active Substance: FLUOROURACIL
     Indication: PANCREATIC CARCINOMA
     Dosage: 2000 MG/M2 OVER 46 HOURS
     Route: 042
  4. OXALIPLATIN. [Concomitant]
     Active Substance: OXALIPLATIN
     Indication: PANCREATIC CARCINOMA
     Dosage: 60 MG/M2 OVER 2 HOURS
     Route: 042
  5. LORAZEPAM (WATSON LABORATORIES) [Interacting]
     Active Substance: LORAZEPAM
     Indication: ANXIETY
     Dosage: 2-3 TIMES DAILY
     Route: 048
  6. LORAZEPAM (WATSON LABORATORIES) [Interacting]
     Active Substance: LORAZEPAM
     Indication: NAUSEA
  7. FOLINIC ACID [Concomitant]
     Active Substance: LEUCOVORIN
     Indication: PANCREATIC CARCINOMA
     Dosage: UNK
     Route: 065
  8. OLANZAPINE (UNKNOWN) [Interacting]
     Active Substance: OLANZAPINE
     Indication: NAUSEA
     Dosage: 10 MG, SINGLE
     Route: 048

REACTIONS (5)
  - Hypotension [Recovered/Resolved]
  - Toxicity to various agents [Recovered/Resolved]
  - Delirium [Recovered/Resolved]
  - Drug interaction [Recovered/Resolved]
  - Respiratory depression [Recovered/Resolved]
